FAERS Safety Report 18806817 (Version 1)
Quarter: 2021Q1

REPORT INFORMATION
  Report Type: Report from Study
  Country: BR (occurrence: BR)
  Receive Date: 20210128
  Receipt Date: 20210128
  Transmission Date: 20210419
  Serious: Yes (Other)
  Sender: FDA-Public Use
  Company Number: BR-JNJFOC-20210135103

PATIENT
  Sex: Male
  Weight: 130 kg

DRUGS (4)
  1. SIMPONI [Suspect]
     Active Substance: GOLIMUMAB
     Indication: RHEUMATOID ARTHRITIS
     Route: 058
     Dates: start: 20140718
  2. TECNOMET [METHOTREXATE] [Concomitant]
     Active Substance: METHOTREXATE
  3. VITAMINS NOS [Concomitant]
     Active Substance: VITAMINS
  4. ANTIBIOTICS [Concomitant]
     Active Substance: UNSPECIFIED INGREDIENT

REACTIONS (2)
  - Device related infection [Unknown]
  - Patient-device incompatibility [Unknown]
